FAERS Safety Report 8088861-9 (Version None)
Quarter: 2012Q1

REPORT INFORMATION
  Report Type: 
  Country: None (occurrence: None)
  Receive Date: 20120128
  Receipt Date: 20110407
  Transmission Date: 20120608
  Serious: Yes (Other)
  Sender: FDA-Public Use
  Company Number: US-ABBOTT-11P-163-0717296-00

PATIENT
  Sex: Female
  Weight: 108.96 kg

DRUGS (4)
  1. LOSARTAN POTASSIUM [Concomitant]
     Indication: BLOOD PRESSURE INCREASED
     Route: 048
  2. HUMIRA [Suspect]
     Indication: RHEUMATOID ARTHRITIS
     Route: 058
     Dates: start: 20050101, end: 20110101
  3. JANUMET [Concomitant]
     Indication: DIABETES MELLITUS
     Dosage: 50/1000 MG, 2 IN 1 DAY
     Route: 048
  4. HUMIRA [Suspect]
     Route: 058
     Dates: start: 20110201

REACTIONS (1)
  - BREAST CANCER [None]
